FAERS Safety Report 10050387 (Version 2)
Quarter: 2014Q2

REPORT INFORMATION
  Report Type: Report from Study
  Country: HU (occurrence: HU)
  Receive Date: 20140401
  Receipt Date: 20140401
  Transmission Date: 20141212
  Serious: Yes (Hospitalization)
  Sender: FDA-Public Use
  Company Number: HU-BRISTOL-MYERS SQUIBB COMPANY-17100256

PATIENT
  Age: 67 Year
  Sex: Female

DRUGS (25)
  1. DASATINIB [Suspect]
     Indication: PANCREATIC CARCINOMA
     Dates: start: 20111219, end: 20120410
  2. GEMCITABINE [Suspect]
     Indication: PANCREATIC CARCINOMA
     Dosage: 1690 MG:19DEC11-27DEC11,1350 MG:10JAN12-03APR12
     Route: 042
     Dates: start: 20111219, end: 20120403
  3. TRITACE [Concomitant]
     Dosage: 2006-19APR12, 19APR12-ONG
     Dates: start: 2006
  4. NORVASC [Concomitant]
     Dates: start: 2006
  5. BETALOC ZOK [Concomitant]
     Dates: start: 2006
  6. CONTROLOC [Concomitant]
     Dosage: 2006-19APR12,19APR12-ONG
     Dates: start: 2006
  7. DIAPREL MR [Concomitant]
     Dates: start: 201111, end: 20120302
  8. ONDANSETRON HCL [Concomitant]
     Dates: start: 20111219
  9. PREDNISOLONE [Concomitant]
     Dates: start: 20120110
  10. SUPRASTIN [Concomitant]
     Dates: start: 20120110
  11. ALPHA D3 [Concomitant]
     Dates: start: 20120223
  12. ARCOXIA [Concomitant]
     Dates: start: 20120223
  13. FRAXIPARINE [Concomitant]
     Dates: start: 201111, end: 201203
  14. VENLAFAXINE HCL [Concomitant]
     Dates: start: 2004, end: 20120411
  15. RIVOTRIL [Concomitant]
     Dates: start: 2004
  16. CLEXANE [Concomitant]
     Dates: start: 20120322, end: 20120409
  17. REXETIN [Concomitant]
     Dates: start: 20120411
  18. INDAPAMIDE [Concomitant]
     Dates: start: 20120419
  19. NITRODERM [Concomitant]
     Dates: start: 20120419
  20. RED BLOOD CELLS [Concomitant]
     Dates: start: 20120411, end: 20120411
  21. PANADOL [Concomitant]
     Dates: start: 20111205
  22. SODIUM PICOSULFATE [Concomitant]
     Dates: start: 20120306, end: 20120320
  23. POTASSIUM [Concomitant]
     Dates: start: 20120410, end: 20120410
  24. IBANDRONIC ACID [Concomitant]
     Dates: start: 20120509
  25. LAEVOLAC [Concomitant]
     Dates: start: 20120410, end: 20120419

REACTIONS (1)
  - Pulmonary fibrosis [Not Recovered/Not Resolved]
